FAERS Safety Report 6942391-3 (Version None)
Quarter: 2010Q3

REPORT INFORMATION
  Report Type: 
  Country: None (occurrence: None)
  Receive Date: 20100826
  Receipt Date: 20100817
  Transmission Date: 20110219
  Serious: Yes (Death, Life-Threatening, Other)
  Sender: FDA-Public Use
  Company Number: PHHY2010JP33146

PATIENT
  Sex: Male
  Weight: 67 kg

DRUGS (3)
  1. DIOVAN [Suspect]
     Dosage: 80 MG, QD
     Route: 048
     Dates: start: 20071128, end: 20090211
  2. ASPIRIN [Concomitant]
     Route: 048
     Dates: start: 20040101, end: 20090211
  3. AMARYL [Concomitant]
     Route: 048
     Dates: start: 20060222, end: 20090211

REACTIONS (5)
  - BLOOD PRESSURE INCREASED [None]
  - CEREBELLAR INFARCTION [None]
  - HYPERTHERMIA [None]
  - INFLUENZA [None]
  - RHABDOMYOLYSIS [None]
